FAERS Safety Report 10170253 (Version 3)
Quarter: 2014Q2

REPORT INFORMATION
  Report Type: Report from Study
  Country: HU (occurrence: HU)
  Receive Date: 20140513
  Receipt Date: 20140620
  Transmission Date: 20141212
  Serious: Yes (Hospitalization)
  Sender: FDA-Public Use
  Company Number: PHHO2014HU006905

PATIENT
  Sex: 0

DRUGS (8)
  1. AFINITOR [Suspect]
     Indication: BREAST CANCER METASTATIC
     Dosage: 10 MG, QD
     Route: 048
     Dates: start: 20130513, end: 20140414
  2. AFINITOR [Suspect]
     Dosage: 5 MG, QD
     Route: 048
     Dates: start: 20140508
  3. EXEMESTANE [Suspect]
     Indication: BREAST CANCER METASTATIC
     Dosage: 25 MG, QD
     Route: 048
     Dates: start: 20130513, end: 20140414
  4. EXEMESTANE [Suspect]
     Dosage: 25 MG, QD
     Route: 048
     Dates: start: 20140508
  5. BONESSA [Concomitant]
     Indication: BONE CANCER METASTATIC
     Dosage: 6 MG, TIW
     Route: 042
     Dates: start: 20130116
  6. ABTEI CALCIUM C [Concomitant]
     Indication: HYPOCALCAEMIA
     Dosage: 1000 MG, QD
     Route: 048
     Dates: start: 20130610, end: 20130730
  7. MOVALIS [Concomitant]
     Indication: ARTHRALGIA
     Dosage: 15 MG, QD
     Route: 048
     Dates: start: 20140321, end: 20140331
  8. FLECTOR [Concomitant]
     Indication: ARTHRALGIA
     Dosage: 150 MG, QD
     Route: 048
     Dates: start: 20140409, end: 20140413

REACTIONS (1)
  - Arthritis [Recovered/Resolved]
